FAERS Safety Report 5926707-2 (Version None)
Quarter: 2008Q4

REPORT INFORMATION
  Report Type: 
  Country: None (occurrence: None)
  Receive Date: 20081022
  Receipt Date: 20081017
  Transmission Date: 20090506
  Serious: Yes (Other)
  Sender: FDA-Public Use
  Company Number: JP-BAYER-200812494BYL

PATIENT
  Age: 79 Year
  Sex: Female

DRUGS (7)
  1. AVELOX [Suspect]
     Indication: SINUSITIS
     Dosage: TOTAL DAILY DOSE: 400 MG  UNIT DOSE: 400 MG
     Route: 048
     Dates: start: 20081004, end: 20081015
  2. LENDORMIN [Concomitant]
     Indication: CARDIAC DISORDER
     Route: 048
  3. HERBESSER [Concomitant]
     Indication: CARDIAC DISORDER
     Route: 048
  4. BUFFERIN [Concomitant]
     Indication: CARDIAC DISORDER
     Route: 048
  5. RABEPRAZOLE SODIUM [Concomitant]
     Indication: CARDIAC DISORDER
     Route: 048
  6. BLOPRESS [Concomitant]
     Indication: CARDIAC DISORDER
     Route: 048
  7. NITROPEN [Concomitant]
     Indication: CARDIAC DISORDER
     Route: 060

REACTIONS (1)
  - HENOCH-SCHONLEIN PURPURA [None]
